FAERS Safety Report 19979154 (Version 2)
Quarter: 2021Q4

REPORT INFORMATION
  Report Type: Spontaneous
  Country: JP (occurrence: JP)
  Receive Date: 20211021
  Receipt Date: 20211108
  Transmission Date: 20220304
  Serious: Yes (Other)
  Sender: FDA-Public Use
  Company Number: JP-NOVARTISPH-NVSC2021JP236905

PATIENT
  Age: 69 Year
  Sex: Male

DRUGS (8)
  1. ETOPOSIDE [Suspect]
     Active Substance: ETOPOSIDE
     Indication: Small cell lung cancer extensive stage
     Dosage: 50 MG/M2, CYCLIC (ONDAYS 1 AND 3) (5 PERCENT GLUCOSE SOLUTION 250 ML)
     Route: 065
  2. ETOPOSIDE [Suspect]
     Active Substance: ETOPOSIDE
     Dosage: 40 MG/M2, CYCLIC (IN 4TH CYCLE)
     Route: 065
  3. ATEZOLIZUMAB [Suspect]
     Active Substance: ATEZOLIZUMAB
     Indication: Small cell lung cancer extensive stage
     Dosage: 1200 MG/BODY (ON DAY 1) (SALINE SOLUTION 250 ML)
     Route: 065
  4. GRANISETRON [Suspect]
     Active Substance: GRANISETRON
     Indication: Small cell lung cancer extensive stage
     Dosage: 3 MG, CYCLIC (ON DAYS 1 TO 3) (SALINE SOLUTION 100 ML)
     Route: 065
  5. PEGFILGRASTIM [Suspect]
     Active Substance: PEGFILGRASTIM
     Indication: Small cell lung cancer extensive stage
     Dosage: 3.6 MG, CYCLIC (ON DAY 5) FROM 2ND CYCLE)
     Route: 065
  6. DEXAMETHASONE [Suspect]
     Active Substance: DEXAMETHASONE
     Indication: Small cell lung cancer extensive stage
     Dosage: 6.6 MG, CYCLIC (ON DAYS 1 TO 3) (SALINE SOLUTION 100 ML)
     Route: 065
  7. CARBOPLATIN [Suspect]
     Active Substance: CARBOPLATIN
     Indication: Small cell lung cancer extensive stage
     Dosage: 300 MG/M2, CYCLIC
     Route: 065
  8. CARBOPLATIN [Suspect]
     Active Substance: CARBOPLATIN
     Dosage: 240 MG/M2, CYCLIC (ON DAY 5)
     Route: 065

REACTIONS (4)
  - Neutropenia [Unknown]
  - Thrombocytopenia [Unknown]
  - Anaemia [Unknown]
  - Therapy partial responder [Unknown]
